FAERS Safety Report 13083991 (Version 1)
Quarter: 2017Q1

REPORT INFORMATION
  Report Type: Spontaneous
  Country: US (occurrence: US)
  Receive Date: 20170104
  Receipt Date: 20170104
  Transmission Date: 20170428
  Serious: No
  Sender: FDA-Public Use
  Company Number: PHEH2016US034195

PATIENT
  Sex: Male
  Weight: 69 kg

DRUGS (1)
  1. AFINITOR [Suspect]
     Active Substance: EVEROLIMUS
     Indication: MALIGNANT CRANIAL NERVE NEOPLASM
     Dosage: 10 MG, QD
     Route: 048

REACTIONS (1)
  - Acne [Not Recovered/Not Resolved]
